FAERS Safety Report 17649177 (Version 1)
Quarter: 2020Q2

REPORT INFORMATION
  Report Type: Spontaneous
  Country: LK (occurrence: LK)
  Receive Date: 20200409
  Receipt Date: 20200409
  Transmission Date: 20200713
  Serious: Yes (Hospitalization)
  Sender: FDA-Public Use
  Company Number: LK-LEADINGPHARMA-LK-2020LEALIT00056

PATIENT
  Age: 35 Year
  Sex: Male

DRUGS (2)
  1. FUROSEMIDE TABLETS USP [Suspect]
     Active Substance: FUROSEMIDE
     Indication: BLOOD CREATININE INCREASED
     Route: 042
  2. METHYLPREDNISOLONE. [Suspect]
     Active Substance: METHYLPREDNISOLONE
     Indication: BLOOD CREATININE INCREASED
     Route: 065

REACTIONS (1)
  - Therapy non-responder [Unknown]
